FAERS Safety Report 20665759 (Version 1)
Quarter: 2022Q2

REPORT INFORMATION
  Report Type: Spontaneous
  Country: GB (occurrence: None)
  Receive Date: 20220402
  Receipt Date: 20220402
  Transmission Date: 20220721
  Serious: Yes (Hospitalization)
  Sender: FDA-Public Use
  Company Number: 2022A136044

PATIENT
  Age: 74 Year
  Sex: Female
  Weight: 70 kg

DRUGS (11)
  1. OMEPRAZOLE [Suspect]
     Active Substance: OMEPRAZOLE
     Dosage: 10 MG, DAILY, MORNING
     Route: 065
     Dates: end: 20211111
  2. DIETHYLAMINE SALICYLATE [Concomitant]
     Active Substance: DIETHYLAMINE SALICYLATE
     Route: 065
  3. BISOPROLOL [Concomitant]
     Active Substance: BISOPROLOL
  4. BECLOMETHASONE DIPROPIONATE [Concomitant]
     Active Substance: BECLOMETHASONE DIPROPIONATE
  5. COCODAMOL [Concomitant]
     Active Substance: ACETAMINOPHEN\CODEINE PHOSPHATE
  6. LISINOPRIL AND HYDROCHLOROTHIAZIDE [Concomitant]
     Active Substance: HYDROCHLOROTHIAZIDE\LISINOPRIL
  7. LACTULOSE [Concomitant]
     Active Substance: LACTULOSE
  8. LERCANIDIPINE [Concomitant]
     Active Substance: LERCANIDIPINE
  9. ALBUTEROL [Concomitant]
     Active Substance: ALBUTEROL
  10. SIMVASTATIN [Concomitant]
     Active Substance: SIMVASTATIN
  11. SINEMET [Concomitant]
     Active Substance: CARBIDOPA\LEVODOPA

REACTIONS (2)
  - Seizure [Unknown]
  - Hyponatraemia [Unknown]

NARRATIVE: CASE EVENT DATE: 20211109
